FAERS Safety Report 5482000-6 (Version None)
Quarter: 2007Q4

REPORT INFORMATION
  Report Type: 
  Country: None (occurrence: None)
  Receive Date: 20071005
  Receipt Date: 20070919
  Transmission Date: 20080405
  Serious: Yes (Congenital Anomaly)
  Sender: FDA-Public Use
  Company Number: 8022082

PATIENT
  Sex: Male
  Weight: 2.542 kg

DRUGS (9)
  1. KEPPRA [Suspect]
     Indication: EPILEPSY
     Dosage: 3000 MG/D TRP
     Dates: start: 20051001, end: 20060722
  2. AMBIEN [Concomitant]
  3. KENALOG [Concomitant]
  4. PRENATAL VITAMINS [Concomitant]
  5. PHENERGAN HCL [Concomitant]
  6. ALBUTEROL [Concomitant]
  7. METOCLOPRAMIDE [Concomitant]
  8. PROZAC [Concomitant]
  9. FERROUS SULFATE TAB [Concomitant]

REACTIONS (13)
  - ANAEMIA [None]
  - COMPLEX PARTIAL SEIZURES [None]
  - CONVULSION [None]
  - DACRYOSTENOSIS CONGENITAL [None]
  - DENTAL CARIES [None]
  - DEPRESSION [None]
  - DRUG EXPOSURE DURING PREGNANCY [None]
  - DYSPNOEA [None]
  - FAILURE TO THRIVE [None]
  - INSOMNIA [None]
  - NAUSEA [None]
  - PRURITUS [None]
  - WEIGHT GAIN POOR [None]
